FAERS Safety Report 5415531-5 (Version None)
Quarter: 2007Q3

REPORT INFORMATION
  Report Type: 
  Country: None (occurrence: None)
  Receive Date: 20070815
  Receipt Date: 20070810
  Transmission Date: 20080115
  Serious: Yes (Hospitalization)
  Sender: FDA-Public Use
  Company Number: A0669473A

PATIENT
  Age: 84 Year
  Sex: Male

DRUGS (4)
  1. AVANDIA [Suspect]
     Dosage: 4MG PER DAY
     Route: 048
     Dates: start: 20010101, end: 20070501
  2. AMARYL [Concomitant]
  3. INSULIN [Concomitant]
  4. COUMADIN [Concomitant]

REACTIONS (1)
  - MYOCARDIAL INFARCTION [None]
